FAERS Safety Report 5268965-6 (Version None)
Quarter: 2007Q1

REPORT INFORMATION
  Report Type: 
  Country: None (occurrence: None)
  Receive Date: 20070319
  Receipt Date: 20070308
  Transmission Date: 20070707
  Serious: Yes (Other)
  Sender: FDA-Public Use
  Company Number: US-JNJFOC-20070302591

PATIENT
  Age: 68 Year
  Sex: Female
  Weight: 77.11 kg

DRUGS (5)
  1. LEVAQUIN [Suspect]
     Indication: BRONCHITIS
     Route: 048
     Dates: start: 20061225, end: 20070103
  2. AVAPRO [Concomitant]
     Route: 048
  3. POTASSIUM CHLORIDE [Concomitant]
     Route: 048
  4. FUROSEMIDE [Concomitant]
     Route: 048
  5. CYMBALTA [Concomitant]
     Route: 048

REACTIONS (2)
  - CARTILAGE INJURY [None]
  - TENDONITIS [None]
